FAERS Safety Report 22275462 (Version 5)
Quarter: 2023Q2

REPORT INFORMATION
  Report Type: Report from Study
  Country: US (occurrence: US)
  Receive Date: 20230502
  Receipt Date: 20230530
  Transmission Date: 20230721
  Serious: Yes (Other)
  Sender: FDA-Public Use
  Company Number: US-002147023-NVSC2023US096453

PATIENT
  Sex: Female

DRUGS (5)
  1. COSENTYX [Suspect]
     Active Substance: SECUKINUMAB
     Indication: Psoriasis
     Dosage: UNK
     Route: 065
  2. ACYCLOVIR [Suspect]
     Active Substance: ACYCLOVIR
     Indication: Product used for unknown indication
     Dosage: UNK
     Route: 065
  3. CLOBETASOL [Suspect]
     Active Substance: CLOBETASOL
     Indication: Skin lesion
     Dosage: UNK
     Route: 065
  4. METHOTREXATE [Suspect]
     Active Substance: METHOTREXATE
     Indication: Arthralgia
     Dosage: UNK
     Route: 065
  5. HUMIRA [Suspect]
     Active Substance: ADALIMUMAB
     Indication: Product used for unknown indication
     Dosage: UNK
     Route: 065

REACTIONS (13)
  - Skin cancer [Unknown]
  - Respiratory syncytial virus infection [Unknown]
  - Arthritis [Unknown]
  - Sensitivity to weather change [Unknown]
  - Illness [Unknown]
  - Epistaxis [Unknown]
  - Fibrous histiocytoma [Unknown]
  - Solar lentigo [Unknown]
  - Alopecia [Unknown]
  - Headache [Unknown]
  - Psoriasis [Not Recovered/Not Resolved]
  - Skin lesion [Unknown]
  - Drug ineffective [Unknown]
